FAERS Safety Report 9349578 (Version 1)
Quarter: 2013Q2

REPORT INFORMATION
  Report Type: Spontaneous
  Country: DE (occurrence: DE)
  Receive Date: 20130614
  Receipt Date: 20130614
  Transmission Date: 20140414
  Serious: Yes (Hospitalization)
  Sender: FDA-Public Use
  Company Number: DE-GLAXOSMITHKLINE-D0080024A

PATIENT
  Sex: Male
  Weight: 30 kg

DRUGS (2)
  1. SULTANOL [Suspect]
     Indication: LUNG INFECTION
     Dosage: 6DROP UNKNOWN
     Route: 055
  2. PREDNISOLON [Suspect]
     Route: 054

REACTIONS (3)
  - Chorea [Recovered/Resolved]
  - Tremor [Recovered/Resolved]
  - Panic reaction [Unknown]
